FAERS Safety Report 23399947 (Version 2)
Quarter: 2024Q3

REPORT INFORMATION
  Report Type: Spontaneous
  Country: AU (occurrence: AU)
  Receive Date: 20240114
  Receipt Date: 20240808
  Transmission Date: 20241016
  Serious: Yes (Hospitalization)
  Sender: AMGEN
  Company Number: AU-AMGEN-AUSSP2024006055

PATIENT
  Age: 60 Year
  Sex: Male

DRUGS (18)
  1. TRASTUZUMAB [Suspect]
     Active Substance: TRASTUZUMAB
     Indication: HER2 positive gastric cancer
     Dosage: 6 MILLIGRAM/KILOGRAM (DAY 1 OF CYCLE 1), 1 CYCLICAL
     Route: 042
     Dates: start: 20220711
  2. TRASTUZUMAB [Suspect]
     Active Substance: TRASTUZUMAB
     Dosage: 4 MILLIGRAM/KILOGRAM (DAY 1 OF EACH CYCLE), 1 CYCLICAL
     Route: 042
  3. TUCATINIB [Suspect]
     Active Substance: TUCATINIB
     Indication: HER2 positive gastric cancer
     Dosage: 250 MILLIGRAM, BID
     Route: 048
     Dates: start: 20220711
  4. TUCATINIB [Suspect]
     Active Substance: TUCATINIB
     Dosage: UNK
     Route: 065
     Dates: start: 20230518, end: 2023
  5. TUCATINIB [Suspect]
     Active Substance: TUCATINIB
     Dosage: 200 MILLIGRAM, BID
     Route: 065
     Dates: start: 20230616
  6. CYRAMZA [Suspect]
     Active Substance: RAMUCIRUMAB
     Indication: HER2 positive gastric cancer
     Dosage: 8 MILLIGRAM/KILOGRAM (DAYS 1 AND 15 OF EACH 28-DAY CYCLE), 1 CYCLICAL
     Route: 042
     Dates: start: 20220611
  7. PACLITAXEL [Suspect]
     Active Substance: PACLITAXEL
     Indication: HER2 positive gastric cancer
     Dosage: 80 MILLIGRAM/SQ. METER, ON DAYS 1, 8 AND 15 OF EACH 28-DAY CYCLE
     Route: 042
     Dates: start: 20220805, end: 20220929
  8. PACLITAXEL [Suspect]
     Active Substance: PACLITAXEL
     Dosage: UNK
     Route: 042
  9. COLCHICINE [Concomitant]
     Active Substance: COLCHICINE
     Indication: Hyperuricaemia
     Dosage: 200 MICROGRAM, QD
     Route: 048
     Dates: start: 20170206
  10. LIPIDIL [Concomitant]
     Active Substance: FENOFIBRATE
     Indication: Blood cholesterol increased
     Dosage: 145 MILLIGRAM, QD
     Route: 048
     Dates: start: 20190428
  11. VITAMIN C [Concomitant]
     Active Substance: ASCORBIC ACID
     Indication: Prophylaxis
     Dosage: UNK UNK, QD
     Route: 048
     Dates: start: 202003
  12. MAXOLON [Concomitant]
     Active Substance: METOCLOPRAMIDE HYDROCHLORIDE
     Indication: Nausea
     Dosage: 10 MILLIGRAM, AS NECESSARY
     Route: 048
     Dates: start: 20221018
  13. ALLOPURINOL [Concomitant]
     Active Substance: ALLOPURINOL
     Indication: Hyperuricaemia
     Dosage: 100 MILLIGRAM, QD
     Route: 048
     Dates: start: 20181204
  14. LOPERAMIDE [Concomitant]
     Active Substance: LOPERAMIDE
  15. FISH OIL [Concomitant]
     Active Substance: FISH OIL
     Indication: Prophylaxis
     Dosage: UNK UNK, QD
     Route: 048
     Dates: start: 20221121
  16. MAGNESIUM [Concomitant]
     Active Substance: MAGNESIUM
     Indication: Prophylaxis
     Dosage: UNK, QD
     Route: 048
     Dates: start: 202212
  17. PANTOPRAZOLE [Concomitant]
     Active Substance: PANTOPRAZOLE
  18. HYDROLATE [Concomitant]
     Dosage: GLUCOSE (+) POTASSIUM CHLORIDE (+) SODIUM CHLORIDE (+) SODIUM CITRATE DIHYDRATE

REACTIONS (1)
  - Syncope [Recovered/Resolved]

NARRATIVE: CASE EVENT DATE: 20230518
